FAERS Safety Report 5195821-4 (Version None)
Quarter: 2007Q1

REPORT INFORMATION
  Report Type: 
  Country: None (occurrence: None)
  Receive Date: 20070102
  Receipt Date: 20061222
  Transmission Date: 20070707
  Serious: Yes (Other)
  Sender: FDA-Public Use
  Company Number: HQWYE046426DEC06

PATIENT
  Sex: Male

DRUGS (12)
  1. ENBREL [Suspect]
     Indication: RHEUMATOID ARTHRITIS
     Route: 058
     Dates: start: 20050705, end: 20061201
  2. ALFAROL [Concomitant]
  3. LORCAM [Concomitant]
  4. TAKEPRON [Concomitant]
  5. ASPIRIN [Concomitant]
  6. KETOPROFEN [Concomitant]
  7. ACUATIM [Concomitant]
  8. MYCOSPOR [Concomitant]
  9. LAMISIL [Concomitant]
  10. SELTOUCH [Concomitant]
  11. PREDNISOLONE [Concomitant]
  12. PURSENNID [Concomitant]

REACTIONS (1)
  - CRYPTOGENIC ORGANISING PNEUMONIA [None]
